FAERS Safety Report 14201992 (Version 2)
Quarter: 2017Q4

REPORT INFORMATION
  Report Type: Report from Study
  Country: CA (occurrence: CA)
  Receive Date: 20171117
  Receipt Date: 20171127
  Transmission Date: 20180321
  Serious: Yes (Death, Other)
  Sender: FDA-Public Use
  Company Number: CA-TAIHO ONCOLOGY INC-US-2017-00309

PATIENT
  Age: 73 Year
  Sex: Male
  Weight: 76.5 kg

DRUGS (12)
  1. HYDROCHLOROTHIAZIDE/LOSARTAN POTASSIUM [Concomitant]
     Dosage: 80/12.5 MG
     Route: 048
     Dates: end: 20171006
  2. REMERON [Concomitant]
     Active Substance: MIRTAZAPINE
     Dosage: QHS
     Route: 048
     Dates: end: 20171006
  3. LONSURF [Suspect]
     Active Substance: TIPIRACIL HYDROCHLORIDE\TRIFLURIDINE
     Indication: COLORECTAL CANCER METASTATIC
     Route: 048
     Dates: start: 20170925, end: 20171006
  4. ACETYLSALICYLIC ACID [Concomitant]
     Active Substance: ASPIRIN
     Route: 048
     Dates: end: 20171006
  5. GABAPENTIN. [Concomitant]
     Active Substance: GABAPENTIN
     Dosage: QAM
     Route: 048
     Dates: end: 20171006
  6. FERROUS FUMARATE [Concomitant]
     Active Substance: FERROUS FUMARATE
     Route: 048
     Dates: end: 20171006
  7. LANSOPRAZOLE. [Concomitant]
     Active Substance: LANSOPRAZOLE
     Route: 048
     Dates: end: 20171006
  8. GABAPENTIN. [Concomitant]
     Active Substance: GABAPENTIN
     Dosage: QPM
     Route: 048
     Dates: end: 20171006
  9. POTASSIUM CHLORIDE. [Concomitant]
     Active Substance: POTASSIUM CHLORIDE
     Route: 048
     Dates: end: 20171006
  10. HYDROMORPHONE HYDROCHLORIDE. [Concomitant]
     Active Substance: HYDROMORPHONE HYDROCHLORIDE
     Route: 048
     Dates: end: 20171006
  11. RIVAROXABAN [Concomitant]
     Active Substance: RIVAROXABAN
     Route: 048
     Dates: end: 20171010
  12. HYDROMORPHONE HYDROCHLORIDE. [Concomitant]
     Active Substance: HYDROMORPHONE HYDROCHLORIDE
     Dosage: SHORT ACTING PRN
     Route: 048
     Dates: end: 20171006

REACTIONS (2)
  - Pancytopenia [Not Recovered/Not Resolved]
  - Escherichia sepsis [Fatal]

NARRATIVE: CASE EVENT DATE: 20171010
